FAERS Safety Report 20975989 (Version 2)
Quarter: 2022Q3

REPORT INFORMATION
  Report Type: Report from Study
  Country: IT (occurrence: IT)
  Receive Date: 20220617
  Receipt Date: 20220915
  Transmission Date: 20221026
  Serious: Yes (Other)
  Sender: FDA-Public Use
  Company Number: IT-NOVARTISPH-NVSC2022IT137284

PATIENT
  Age: 80 Year
  Sex: Female

DRUGS (1)
  1. KISQALI [Suspect]
     Active Substance: RIBOCICLIB
     Indication: Product used for unknown indication
     Dosage: 200 MG (3 TABLETS/DAY)
     Route: 065
     Dates: start: 20220501, end: 20220909

REACTIONS (4)
  - Electrocardiogram ST segment depression [Unknown]
  - Bundle branch block right [Unknown]
  - Blood electrolytes decreased [Unknown]
  - Electrocardiogram abnormal [Unknown]

NARRATIVE: CASE EVENT DATE: 20220611
